FAERS Safety Report 17201327 (Version 1)
Quarter: 2019Q4

REPORT INFORMATION
  Report Type: Spontaneous
  Country: US (occurrence: US)
  Receive Date: 20191203
  Receipt Date: 20191203
  Transmission Date: 20200122
  Serious: Yes (Hospitalization)
  Sender: FDA-Public Use
  Company Number: None

PATIENT
  Age: 76 Year
  Sex: Male
  Weight: 72.2 kg

DRUGS (6)
  1. DOXORUBICIN HYDROCHLORIDE. [Suspect]
     Active Substance: DOXORUBICIN HYDROCHLORIDE
     Dates: end: 20191117
  2. PREDNISONE. [Suspect]
     Active Substance: PREDNISONE
  3. CYCLOPHOSPHAMIDE. [Suspect]
     Active Substance: CYCLOPHOSPHAMIDE
     Dates: end: 20191129
  4. VINCRISTINE SULFATE. [Suspect]
     Active Substance: VINCRISTINE SULFATE
  5. ETOPOSIDE (VP-16) [Suspect]
     Active Substance: ETOPOSIDE
  6. RITUXIMAB (MOAB C2B8 ANTI CD20, CHIMERIC) [Suspect]
     Active Substance: RITUXIMAB

REACTIONS (12)
  - White blood cell count decreased [None]
  - Blood culture positive [None]
  - Neutrophil count decreased [None]
  - Bacteraemia [None]
  - Atrial fibrillation [None]
  - Escherichia test positive [None]
  - Clostridium test positive [None]
  - Diarrhoea [None]
  - Red blood cell count decreased [None]
  - Thrombocytopenia [None]
  - Hypophagia [None]
  - Lethargy [None]

NARRATIVE: CASE EVENT DATE: 20191125
